FAERS Safety Report 7023105-8 (Version None)
Quarter: 2010Q3

REPORT INFORMATION
  Report Type: 
  Country: None (occurrence: None)
  Receive Date: 20100930
  Receipt Date: 20100923
  Transmission Date: 20110219
  Serious: Yes (Other)
  Sender: FDA-Public Use
  Company Number: PHHY2010DK64412

PATIENT
  Sex: Female

DRUGS (3)
  1. EXELON [Suspect]
     Dosage: 9.5 MG/24 HOURS, ONCE DAILY
     Route: 062
     Dates: start: 20100520, end: 20100901
  2. MEMANTINE HCL [Concomitant]
     Dosage: 20 MG DAILY
  3. REMERON [Concomitant]
     Dosage: 30 MG, QD

REACTIONS (1)
  - URINARY TRACT INFECTION [None]
